FAERS Safety Report 6233461-6 (Version None)
Quarter: 2009Q2

REPORT INFORMATION
  Report Type: 
  Country: None (occurrence: None)
  Receive Date: 20090616
  Receipt Date: 20090616
  Transmission Date: 20091009
  Serious: No
  Sender: FDA-Public Use
  Company Number: None

PATIENT
  Age: 69 Year
  Sex: Female
  Weight: 63.5036 kg

DRUGS (2)
  1. DULCOLAX [Suspect]
     Indication: BOWEL PREPARATION
     Dosage: 2 TABLETS 1 TIME
     Dates: start: 20090608, end: 20090608
  2. DULCOLAX [Suspect]
     Indication: COLONOSCOPY
     Dosage: 2 TABLETS 1 TIME
     Dates: start: 20090608, end: 20090608

REACTIONS (6)
  - ASTHENIA [None]
  - HYPERHIDROSIS [None]
  - MALAISE [None]
  - MUSCLE SPASMS [None]
  - NAUSEA [None]
  - VOMITING [None]
